FAERS Safety Report 21458611 (Version 3)
Quarter: 2022Q4

REPORT INFORMATION
  Report Type: Report from Study
  Country: CN (occurrence: None)
  Receive Date: 20221014
  Receipt Date: 20221215
  Transmission Date: 20230112
  Serious: Yes (Hospitalization)
  Sender: FDA-Public Use
  Company Number: CN-ROCHE-3197815

PATIENT
  Age: 59 Year
  Sex: Male
  Weight: 54.5 kg

DRUGS (4)
  1. ATEZOLIZUMAB [Suspect]
     Active Substance: ATEZOLIZUMAB
     Indication: Gastrooesophageal cancer
     Dosage: DOSE LAST STUDY DRUG ADMIN PRIOR AE IS 1200 MG. START DATE OF MOST RECENT DOSE OF STUDY DRUG PRIOR T
     Route: 041
     Dates: start: 20220726
  2. CAPECITABINE [Suspect]
     Active Substance: CAPECITABINE
     Indication: Gastrooesophageal cancer
     Dosage: DOSE LAST STUDY DRUG ADMIN PRIOR AE IS 2000 MG. START DATE OF MOST RECENT DOSE OF STUDY DRUG PRIOR T
     Route: 048
     Dates: start: 20220726
  3. OXALIPLATIN [Suspect]
     Active Substance: OXALIPLATIN
     Indication: Gastrooesophageal cancer
     Dosage: DOSE LAST STUDY DRUG ADMIN PRIOR AE IS 200 MG. START DATE OF MOST RECENT DOSE OF STUDY DRUG PRIOR TO
     Route: 042
     Dates: start: 20220726
  4. CELEBREX [Concomitant]
     Active Substance: CELECOXIB
     Indication: Abdominal pain
     Dosage: GIVEN FOR PROPHYLAXIS.
     Dates: start: 20220726

REACTIONS (1)
  - Haemoptysis [Not Recovered/Not Resolved]

NARRATIVE: CASE EVENT DATE: 20221010
